FAERS Safety Report 7449061-6 (Version None)
Quarter: 2011Q2

REPORT INFORMATION
  Report Type: 
  Country: None (occurrence: None)
  Receive Date: 20110501
  Receipt Date: 20110426
  Transmission Date: 20111010
  Serious: Yes (Congenital Anomaly, Other)
  Sender: FDA-Public Use
  Company Number: FR-BRISTOL-MYERS SQUIBB COMPANY-15704158

PATIENT
  Age: 1 Day
  Sex: Male
  Weight: 4 kg

DRUGS (5)
  1. ABILIFY [Suspect]
     Route: 064
     Dates: start: 20080801, end: 20080901
  2. TRANXENE [Suspect]
     Dosage: 5/D FROM AN UNSPECIFIED DATE, THEN 3/D FROM 14-APR-2009 TO 15-MAY-2009
     Route: 064
     Dates: start: 20090414, end: 20090515
  3. LEPTICUR [Suspect]
     Route: 064
     Dates: start: 20090515
  4. TERCIAN [Suspect]
     Dosage: THEN 4/D FROM 14-APR-2009, LAST 2/D FROM AN UNSPECIFIED DATE TO 15-MAY-2009 8/D FROM 09-MAR-2009
     Route: 064
     Dates: start: 20090309, end: 20090515
  5. RISPERDAL [Suspect]
     Route: 064
     Dates: end: 20090515

REACTIONS (3)
  - HYDROCELE [None]
  - CRYPTORCHISM [None]
  - POSTMATURE BABY [None]
